FAERS Safety Report 4888443-3 (Version None)
Quarter: 2006Q1

REPORT INFORMATION
  Report Type: 
  Country: None (occurrence: None)
  Receive Date: 20060119
  Receipt Date: 20060104
  Transmission Date: 20060701
  Serious: Yes (Death)
  Sender: FDA-Public Use
  Company Number: 06-000016

PATIENT
  Age: 90 Year
  Sex: Female

DRUGS (1)
  1. DOVONEX [Suspect]
     Dosage: TOPICAL
     Route: 061

REACTIONS (1)
  - DEATH [None]
